FAERS Safety Report 26009837 (Version 1)
Quarter: 2025Q4

REPORT INFORMATION
  Report Type: Spontaneous
  Country: CN (occurrence: CN)
  Receive Date: 20251107
  Receipt Date: 20251107
  Transmission Date: 20260118
  Serious: Yes (Life-Threatening, Hospitalization, Other)
  Sender: ADAPTIS PHARMA INDIA
  Company Number: CN-Adaptis Pharma Private Limited-2188074

PATIENT
  Age: 14 Year
  Sex: Female

DRUGS (2)
  1. LEVETIRACETAM [Suspect]
     Active Substance: LEVETIRACETAM
     Indication: Epilepsy
  2. LAMOTRIGINE [Concomitant]
     Active Substance: LAMOTRIGINE

REACTIONS (1)
  - Epidermolysis bullosa [Unknown]

NARRATIVE: CASE EVENT DATE: 20230612
